FAERS Safety Report 9207399 (Version 1)
Quarter: 2013Q1

REPORT INFORMATION
  Report Type: Spontaneous
  Country: US (occurrence: None)
  Receive Date: 20120809
  Receipt Date: 20120809
  Transmission Date: 20140127
  Serious: Yes (Hospitalization)
  Sender: FDA-Public Use
  Company Number: PIR#CC400116660

PATIENT
  Age: 61 Year
  Sex: Male
  Weight: 164.2 kg

DRUGS (1)
  1. HEPARIN SODIUM [Suspect]

REACTIONS (1)
  - Drug ineffective [None]
